FAERS Safety Report 18561166 (Version 2)
Quarter: 2025Q1

REPORT INFORMATION
  Report Type: Report from Study
  Country: BR (occurrence: BR)
  Receive Date: 20201130
  Receipt Date: 20250205
  Transmission Date: 20250408
  Serious: Yes (Hospitalization, Other)
  Sender: TAKEDA
  Company Number: BR-TAKEDA-BR202031812

PATIENT
  Sex: Male
  Weight: 28 kg

DRUGS (4)
  1. HEMO-8R [Suspect]
     Active Substance: ANTIHEMOPHILIC FACTOR, HUMAN RECOMBINANT
     Indication: Factor VIII deficiency
     Dosage: 500 INTERNATIONAL UNIT, 3/WEEK
     Dates: start: 20120726
  2. HEMO-8R [Suspect]
     Active Substance: ANTIHEMOPHILIC FACTOR, HUMAN RECOMBINANT
  3. HEMO-8R [Suspect]
     Active Substance: ANTIHEMOPHILIC FACTOR, HUMAN RECOMBINANT
     Dosage: 1000 INTERNATIONAL UNIT, 3/WEEK
  4. FEIBA NF [Suspect]
     Active Substance: ANTI-INHIBITOR COAGULANT COMPLEX
     Indication: Product used for unknown indication

REACTIONS (5)
  - Osteoarthritis [Recovering/Resolving]
  - Gait inability [Recovering/Resolving]
  - Anti factor VIII antibody positive [Unknown]
  - Pain [Recovering/Resolving]
  - Joint swelling [Recovering/Resolving]
